FAERS Safety Report 11193136 (Version 1)
Quarter: 2015Q2

REPORT INFORMATION
  Report Type: Spontaneous
  Country: US (occurrence: None)
  Receive Date: 20150615
  Receipt Date: 20150615
  Transmission Date: 20150821
  Serious: No
  Sender: FDA-Public Use
  Company Number: None

PATIENT
  Age: 93 Year
  Sex: Female
  Weight: 70.31 kg

DRUGS (11)
  1. LOSARTAN [Concomitant]
     Active Substance: LOSARTAN
  2. NITROFURANTOIN. [Concomitant]
     Active Substance: NITROFURANTOIN
  3. MAEVO [Concomitant]
  4. RANITIDINE [Concomitant]
     Active Substance: RANITIDINE\RANITIDINE HYDROCHLORIDE
  5. VITAMIN D [Concomitant]
     Active Substance: CHOLECALCIFEROL
  6. ASPIRIN. [Concomitant]
     Active Substance: ASPIRIN
  7. AZELASTINE [Suspect]
     Active Substance: AZELASTINE
     Indication: NASAL CONGESTION
     Dosage: 0.15 PCT; SPRAYED IN NOSE
     Dates: start: 20150415, end: 20150425
  8. AZELASTINE [Suspect]
     Active Substance: AZELASTINE
     Indication: SEASONAL ALLERGY
     Dosage: 0.15 PCT; SPRAYED IN NOSE
     Dates: start: 20150415, end: 20150425
  9. FISH OIL [Concomitant]
     Active Substance: FISH OIL
  10. TRAMADOL [Concomitant]
     Active Substance: TRAMADOL
  11. CENTRUM SILVER [Concomitant]
     Active Substance: VITAMINS

REACTIONS (1)
  - Hallucination, auditory [None]

NARRATIVE: CASE EVENT DATE: 20150420
